FAERS Safety Report 5286984-0 (Version None)
Quarter: 2007Q1

REPORT INFORMATION
  Report Type: 
  Country: None (occurrence: None)
  Receive Date: 20070329
  Receipt Date: 20070314
  Transmission Date: 20070707
  Serious: Yes (Hospitalization)
  Sender: FDA-Public Use
  Company Number: GXKR2006GB02665

PATIENT
  Age: 16 Month
  Sex: Female

DRUGS (5)
  1. LAMOTRIGINE [Suspect]
     Indication: CONVULSION
     Dosage: 150 MG, ORAL
     Route: 048
  2. PHENOXYMETHYLPENICILLIN (NGX)(PHENOXYMETHYLPENICILLIN BENZATHINE) UNKN [Suspect]
  3. CO-AMOXICLAV (NGX)(AMOXICILLIN, CLAVULANATE) UNKNOWN [Suspect]
     Dates: start: 20060110
  4. AUGMENTIN '125' [Suspect]
     Dates: start: 19960101, end: 19960101
  5. PHENYTOIN [Suspect]
     Indication: CONVULSION
     Dosage: 9 MG

REACTIONS (12)
  - ABNORMAL FAECES [None]
  - CANDIDIASIS [None]
  - CONVULSION [None]
  - DRUG INEFFECTIVE [None]
  - EPISTAXIS [None]
  - LACTOSE INTOLERANCE [None]
  - PHARYNGEAL OEDEMA [None]
  - RASH [None]
  - RASH GENERALISED [None]
  - UPPER LIMB FRACTURE [None]
  - UPPER RESPIRATORY TRACT INFECTION [None]
  - VOMITING PROJECTILE [None]
